FAERS Safety Report 11315896 (Version 1)
Quarter: 2015Q3

REPORT INFORMATION
  Report Type: Spontaneous
  Country: US (occurrence: None)
  Receive Date: 20150727
  Receipt Date: 20150727
  Transmission Date: 20151125
  Serious: No
  Sender: FDA-Public Use
  Company Number: None

PATIENT
  Age: 63 Year
  Sex: Male

DRUGS (15)
  1. THYMOGLOBULIN [Suspect]
     Active Substance: LAPINE T-LYMPHOCYTE IMMUNE GLOBULIN
     Indication: IMMUNOSUPPRESSION
     Route: 042
     Dates: start: 20150528, end: 20150528
  2. ONDANSETRON [Concomitant]
     Active Substance: ONDANSETRON
  3. GLYCOPYRROLATE. [Concomitant]
     Active Substance: GLYCOPYRROLATE
  4. HYDROMORPHONE [Concomitant]
     Active Substance: HYDROMORPHONE
  5. METHYLPREDNISOLONE. [Concomitant]
     Active Substance: METHYLPREDNISOLONE
  6. FENTANYL. [Concomitant]
     Active Substance: FENTANYL
  7. CEFAZOLIN [Concomitant]
     Active Substance: CEFAZOLIN
  8. GENTAMICIN. [Concomitant]
     Active Substance: GENTAMICIN
  9. HEPARIN [Concomitant]
     Active Substance: HEPARIN SODIUM
  10. CISATRACURIUM. [Concomitant]
     Active Substance: CISATRACURIUM
  11. LIDOCAINE. [Concomitant]
     Active Substance: LIDOCAINE
  12. FUROSEMIDE. [Concomitant]
     Active Substance: FUROSEMIDE
  13. MANNITOL. [Concomitant]
     Active Substance: MANNITOL
  14. PHENYLEPHRINE [Concomitant]
     Active Substance: PHENYLEPHRINE\PHENYLEPHRINE HYDROCHLORIDE
  15. PROPOFOL. [Concomitant]
     Active Substance: PROPOFOL

REACTIONS (6)
  - Muscle rigidity [None]
  - Respiratory distress [None]
  - Hypotension [None]
  - Mental status changes [None]
  - Atrial fibrillation [None]
  - Pyrexia [None]

NARRATIVE: CASE EVENT DATE: 20150528
